FAERS Safety Report 6964503-8 (Version None)
Quarter: 2010Q3

REPORT INFORMATION
  Report Type: 
  Country: None (occurrence: None)
  Receive Date: 20100903
  Receipt Date: 20100823
  Transmission Date: 20110219
  Serious: Yes (Other)
  Sender: FDA-Public Use
  Company Number: US-PFIZER INC-2007035441

PATIENT
  Sex: Female
  Weight: 61.2 kg

DRUGS (19)
  1. CHANTIX [Suspect]
     Indication: SMOKING CESSATION THERAPY
     Dosage: 0.5 MG, 1X/DAY
     Dates: start: 20070427
  2. CHANTIX [Suspect]
     Dosage: UNK
     Dates: start: 20080101
  3. CHANTIX [Suspect]
     Dosage: UNK
     Route: 048
     Dates: start: 20091001
  4. CHANTIX [Suspect]
     Dosage: UNK
     Dates: start: 20100827
  5. TUSSIN DM [Suspect]
     Indication: INCREASED UPPER AIRWAY SECRETION
     Dosage: UNK
     Dates: start: 20100828
  6. PAXIL [Concomitant]
     Indication: DEPRESSION
     Dosage: 60 MG, 1X/DAY
  7. RISPERDAL [Concomitant]
     Indication: DEPRESSION
     Dosage: 1 MG, 2X/DAY
  8. RISPERDAL [Concomitant]
     Indication: ANXIETY
  9. TRAZODONE [Concomitant]
     Indication: DEPRESSION
     Dosage: 100 MG, 1X/DAY
     Route: 048
  10. TRAZODONE [Concomitant]
     Indication: ANXIETY
  11. KLONOPIN [Concomitant]
     Dosage: UNK
  12. CELEBREX [Concomitant]
     Indication: ARTHRITIS
     Dosage: 200 MG, UNK
  13. CLONIDINE [Concomitant]
     Indication: DEPRESSION
     Dosage: 1 MG, 3X/DAY
     Route: 048
  14. CLONIDINE [Concomitant]
     Indication: ANXIETY
  15. DETROL LA [Concomitant]
     Indication: HYPERTONIC BLADDER
     Dosage: 4 MG, 1X/DAY
  16. PREVACID [Concomitant]
     Indication: DYSPEPSIA
     Dosage: UNK
  17. PREVACID [Concomitant]
     Indication: ILL-DEFINED DISORDER
  18. DARVOCET [Concomitant]
     Indication: ARTHRITIS
     Dosage: 100 MG, UNK
  19. VISTARIL [Concomitant]
     Dosage: UNK

REACTIONS (28)
  - ABDOMINAL PAIN UPPER [None]
  - ABNORMAL BEHAVIOUR [None]
  - ABNORMAL DREAMS [None]
  - AGITATION [None]
  - ANGER [None]
  - ANXIETY [None]
  - APHONIA [None]
  - CONSTIPATION [None]
  - DEPRESSION [None]
  - DRY MOUTH [None]
  - DYSPNOEA [None]
  - EMOTIONAL DISORDER [None]
  - FATIGUE [None]
  - FEELING ABNORMAL [None]
  - FLATULENCE [None]
  - HEADACHE [None]
  - HYPERHIDROSIS [None]
  - INCREASED UPPER AIRWAY SECRETION [None]
  - IRRITABILITY [None]
  - MOOD SWINGS [None]
  - MUSCLE SPASMS [None]
  - NASOPHARYNGITIS [None]
  - NAUSEA [None]
  - NERVOUSNESS [None]
  - ORAL PAIN [None]
  - RESTLESSNESS [None]
  - SOMNOLENCE [None]
  - TOBACCO USER [None]
